FAERS Safety Report 23197092 (Version 1)
Quarter: 2023Q4

REPORT INFORMATION
  Report Type: Report from Study
  Country: US (occurrence: US)
  Receive Date: 20231117
  Receipt Date: 20231117
  Transmission Date: 20240110
  Serious: Yes (Hospitalization)
  Sender: FDA-Public Use
  Company Number: US-OTSUKA-2023_029808

PATIENT
  Age: 61 Year
  Sex: Male
  Weight: 81.37 kg

DRUGS (1)
  1. CEDAZURIDINE\DECITABINE [Suspect]
     Active Substance: CEDAZURIDINE\DECITABINE
     Indication: Anaemia
     Dosage: UNK (35 MG DECITABINE AND 100 MG CEDAZURIDINE), QD (ON DAYS 1-5) OF EACH 28 DAY CYCLE
     Route: 048
     Dates: start: 20231003, end: 20231113

REACTIONS (2)
  - Full blood count abnormal [Unknown]
  - Product use in unapproved indication [Unknown]

NARRATIVE: CASE EVENT DATE: 20231003
